FAERS Safety Report 5619264-1 (Version None)
Quarter: 2008Q1

REPORT INFORMATION
  Report Type: 
  Country: None (occurrence: None)
  Receive Date: 20080205
  Receipt Date: 20080124
  Transmission Date: 20080703
  Serious: Yes (Other)
  Sender: FDA-Public Use
  Company Number: 2008008112

PATIENT
  Sex: Female

DRUGS (1)
  1. FRAGMIN [Suspect]
     Indication: PROPHYLAXIS
     Dosage: SUBCUTANEOUS
     Route: 058

REACTIONS (2)
  - ABORTION SPONTANEOUS [None]
  - DRUG EXPOSURE DURING PREGNANCY [None]
